FAERS Safety Report 12692487 (Version 5)
Quarter: 2017Q4

REPORT INFORMATION
  Report Type: Report from Study
  Country: JP (occurrence: JP)
  Receive Date: 20160829
  Receipt Date: 20171105
  Transmission Date: 20180320
  Serious: Yes (Hospitalization, Other)
  Sender: FDA-Public Use
  Company Number: JP-ALEXION-A201502457

PATIENT

DRUGS (33)
  1. NEORAL [Suspect]
     Active Substance: CYCLOSPORINE
     Dosage: 350 MG, DAILY
     Route: 048
     Dates: start: 20151111, end: 20151221
  2. PREDONINE [Suspect]
     Active Substance: PREDNISOLONE
     Dosage: 10 MG, UNK
     Route: 065
     Dates: start: 20150425, end: 20150427
  3. PREDONINE [Suspect]
     Active Substance: PREDNISOLONE
     Dosage: 5 MG, UNK
     Route: 065
     Dates: start: 20150428, end: 20150430
  4. G-CSF [Concomitant]
     Active Substance: GRANULOCYTE COLONY-STIMULATING FACTOR NOS
     Indication: PRODUCT USED FOR UNKNOWN INDICATION
     Dosage: UNK
     Route: 065
     Dates: start: 201503, end: 201504
  5. NEORAL [Suspect]
     Active Substance: CYCLOSPORINE
     Dosage: UNK
     Route: 048
  6. SOLIRIS [Suspect]
     Active Substance: ECULIZUMAB
     Dosage: 900 MG, Q2W
     Route: 042
  7. NESP [Concomitant]
     Active Substance: DARBEPOETIN ALFA
     Indication: PRODUCT USED FOR UNKNOWN INDICATION
     Dosage: 120 MG, Q2W
     Route: 058
     Dates: start: 20160217
  8. ORGARAN [Concomitant]
     Active Substance: DANAPAROID SODIUM
     Indication: PRODUCT USED FOR UNKNOWN INDICATION
     Dosage: 2500 IU, DAILY
     Route: 058
     Dates: start: 20150401, end: 20150406
  9. NEORAL [Suspect]
     Active Substance: CYCLOSPORINE
     Dosage: 300MG DAILY
     Route: 048
     Dates: start: 20150414, end: 20150421
  10. NEORAL [Suspect]
     Active Substance: CYCLOSPORINE
     Dosage: 450 MG, DAILY
     Route: 048
     Dates: start: 20160120
  11. FOLIAMIN [Concomitant]
     Active Substance: FOLIC ACID
     Indication: PAROXYSMAL NOCTURNAL HAEMOGLOBINURIA
     Dosage: 5 MG, DAILY
     Route: 048
     Dates: start: 20130206, end: 20140813
  12. NEXIUM [Concomitant]
     Active Substance: ESOMEPRAZOLE MAGNESIUM
     Indication: PRODUCT USED FOR UNKNOWN INDICATION
     Dosage: 20 MG, DAILY
     Route: 048
     Dates: start: 20150327
  13. NEORAL [Suspect]
     Active Substance: CYCLOSPORINE
     Dosage: 300 MG, DAILY
     Route: 048
     Dates: start: 20150401, end: 20150402
  14. NEORAL [Suspect]
     Active Substance: CYCLOSPORINE
     Dosage: 320 MG, DAILY
     Route: 048
     Dates: start: 20150403, end: 20150413
  15. NEORAL [Suspect]
     Active Substance: CYCLOSPORINE
     Dosage: 250 MG, DAILY
     Route: 048
     Dates: start: 20150422, end: 20151013
  16. NEORAL [Suspect]
     Active Substance: CYCLOSPORINE
     Dosage: 300 MG, DAILY
     Route: 048
     Dates: start: 20151014, end: 20151110
  17. PREDONINE [Suspect]
     Active Substance: PREDNISOLONE
     Indication: PRODUCT USED FOR UNKNOWN INDICATION
     Dosage: 30 MG, UNK
     Route: 065
     Dates: start: 20110411, end: 20150417
  18. PREDONINE [Suspect]
     Active Substance: PREDNISOLONE
     Dosage: 15 MG, UNK
     Route: 065
     Dates: start: 20150418, end: 20150424
  19. BONZOL                             /00428701/ [Concomitant]
     Dosage: 100 MG, DAILY
     Route: 065
     Dates: start: 20140806, end: 20140910
  20. SOLIRIS [Suspect]
     Active Substance: ECULIZUMAB
     Dosage: 900 MG, Q2W
     Route: 042
     Dates: start: 20140813
  21. NEORAL [Suspect]
     Active Substance: CYCLOSPORINE
     Indication: IMMUNOSUPPRESSION
     Dosage: 100 MG, DAILY
     Route: 048
     Dates: start: 20140925, end: 20141203
  22. NEORAL [Suspect]
     Active Substance: CYCLOSPORINE
     Dosage: 180 MG DAILY
     Route: 065
     Dates: start: 20150219, end: 20150331
  23. NEORAL [Suspect]
     Active Substance: CYCLOSPORINE
     Dosage: 400 MG, DAILY
     Route: 048
     Dates: start: 20151222, end: 20160119
  24. BONZOL                             /00428701/ [Concomitant]
     Indication: PAROXYSMAL NOCTURNAL HAEMOGLOBINURIA
     Dosage: 200 MG, DAILY
     Route: 065
     Dates: start: 20140723, end: 20140805
  25. WARFARIN [Concomitant]
     Active Substance: WARFARIN
     Indication: PAROXYSMAL NOCTURNAL HAEMOGLOBINURIA
     Dosage: 2 MG, DAILY
     Route: 048
     Dates: start: 20130206, end: 20141217
  26. NEORAL [Suspect]
     Active Substance: CYCLOSPORINE
     Indication: PAROXYSMAL NOCTURNAL HAEMOGLOBINURIA
     Dosage: 150 MG, DAILY
     Route: 048
     Dates: start: 20140604, end: 20140924
  27. ATG                                /00575401/ [Suspect]
     Active Substance: LAPINE T-LYMPHOCYTE IMMUNE GLOBULIN
     Indication: PANCYTOPENIA
     Dosage: 125 MG, DAILY
     Route: 065
     Dates: start: 20150330, end: 20150403
  28. FERROUS CITRATE [Concomitant]
     Active Substance: FERROUS CITRATE
     Indication: PRODUCT USED FOR UNKNOWN INDICATION
     Dosage: 50 MG, DAILY
     Route: 048
     Dates: start: 20151125, end: 20151222
  29. SOLIRIS [Suspect]
     Active Substance: ECULIZUMAB
     Indication: PAROXYSMAL NOCTURNAL HAEMOGLOBINURIA
     Dosage: 600 MG, QW
     Route: 042
     Dates: start: 20140716, end: 20140806
  30. NEORAL [Suspect]
     Active Substance: CYCLOSPORINE
     Indication: PANCYTOPENIA
     Dosage: 150 MG, DAILY
     Route: 065
     Dates: start: 20141204, end: 20150204
  31. NEORAL [Suspect]
     Active Substance: CYCLOSPORINE
     Dosage: 140MG DAILY
     Route: 065
     Dates: start: 20150205, end: 20150218
  32. ATG                                /00575401/ [Suspect]
     Active Substance: LAPINE T-LYMPHOCYTE IMMUNE GLOBULIN
     Dosage: UNK
     Route: 065
     Dates: start: 201503, end: 20150403
  33. FOLIAMIN [Concomitant]
     Active Substance: FOLIC ACID
     Dosage: 15 MG DAILY
     Route: 048
     Dates: start: 20150722

REACTIONS (5)
  - Pancytopenia [Not Recovered/Not Resolved]
  - Phyllodes tumour [Unknown]
  - Herpes zoster [Recovered/Resolved]
  - Anaemia [Unknown]
  - Immunosuppressant drug therapy [Unknown]

NARRATIVE: CASE EVENT DATE: 20150304
